FAERS Safety Report 5058073-1 (Version None)
Quarter: 2006Q3

REPORT INFORMATION
  Report Type: 
  Country: None (occurrence: None)
  Receive Date: 20060721
  Receipt Date: 20060712
  Transmission Date: 20061208
  Serious: Yes (Hospitalization)
  Sender: FDA-Public Use
  Company Number: US-ROCHE-455389

PATIENT
  Age: 47 Year
  Sex: Female

DRUGS (3)
  1. PEGASYS [Suspect]
     Route: 058
     Dates: start: 20050815, end: 20060315
  2. RIBAVIRIN [Suspect]
     Route: 048
     Dates: start: 20050815, end: 20051015
  3. RIBAVIRIN [Suspect]
     Route: 048
     Dates: start: 20051015, end: 20060315

REACTIONS (2)
  - GASTROOESOPHAGEAL REFLUX DISEASE [None]
  - INFLUENZA LIKE ILLNESS [None]
